FAERS Safety Report 7062502-1 (Version None)
Quarter: 2010Q4

REPORT INFORMATION
  Report Type: 
  Country: None (occurrence: None)
  Receive Date: 20101026
  Receipt Date: 20091124
  Transmission Date: 20110411
  Serious: No
  Sender: FDA-Public Use
  Company Number: US-PFIZER INC-2009286962

PATIENT
  Sex: Male
  Weight: 77.098 kg

DRUGS (2)
  1. LIPITOR [Suspect]
     Indication: HYPERLIPIDAEMIA
     Dosage: 80 MG, 1X/DAY
  2. LIPITOR [Suspect]
     Indication: CORONARY ARTERY DISEASE

REACTIONS (1)
  - BLOOD CREATINE PHOSPHOKINASE INCREASED [None]
